FAERS Safety Report 14422869 (Version 1)
Quarter: 2018Q1

REPORT INFORMATION
  Report Type: Spontaneous
  Country: US (occurrence: US)
  Receive Date: 20180123
  Receipt Date: 20180123
  Transmission Date: 20180509
  Serious: No
  Sender: FDA-Public Use
  Company Number: US-ENDO PHARMACEUTICALS INC-2017-003086

PATIENT
  Sex: Female

DRUGS (1)
  1. PERCOCET [Suspect]
     Active Substance: ACETAMINOPHEN\OXYCODONE HYDROCHLORIDE
     Indication: INCISION SITE PAIN
     Dosage: UNK UNK, UNKNOWN
     Route: 048

REACTIONS (5)
  - Dyspnoea [Unknown]
  - Pharyngeal oedema [Unknown]
  - Dysphonia [Unknown]
  - Memory impairment [Unknown]
  - Somnolence [Unknown]
